FAERS Safety Report 18926592 (Version 1)
Quarter: 2021Q1

REPORT INFORMATION
  Report Type: Other
  Country: US (occurrence: US)
  Receive Date: 20210223
  Receipt Date: 20210223
  Transmission Date: 20210420
  Serious: Yes (Hospitalization, Other)
  Sender: FDA-Public Use
  Company Number: US-ROCHE-2195429

PATIENT
  Age: 56 Year
  Sex: Female
  Weight: 74.91 kg

DRUGS (10)
  1. OCREVUS [Suspect]
     Active Substance: OCRELIZUMAB
     Route: 042
     Dates: start: 20180815
  2. OCREVUS [Suspect]
     Active Substance: OCRELIZUMAB
     Route: 042
     Dates: start: 20190814
  3. OCREVUS [Suspect]
     Active Substance: OCRELIZUMAB
     Route: 042
     Dates: start: 20190828
  4. OCREVUS [Suspect]
     Active Substance: OCRELIZUMAB
     Dosage: RECENT DOSE: 28/FEB/2019
     Route: 042
     Dates: start: 20190214
  5. OCREVUS [Suspect]
     Active Substance: OCRELIZUMAB
     Dosage: FULL DOSE
     Route: 042
     Dates: start: 201708
  6. OCREVUS [Suspect]
     Active Substance: OCRELIZUMAB
     Indication: SECONDARY PROGRESSIVE MULTIPLE SCLEROSIS
     Dosage: HAD RECEIVED THE DOSE ON 18/FEB/2018
     Route: 042
     Dates: start: 20180214
  7. OCREVUS [Suspect]
     Active Substance: OCRELIZUMAB
     Indication: RELAPSING MULTIPLE SCLEROSIS
     Dosage: 30/AUG/2017?600 MG ONCE IN 6 MONTHS
     Route: 042
     Dates: start: 20170816
  8. NADOLOL. [Concomitant]
     Active Substance: NADOLOL
     Dosage: UNKNOWN
  9. OCREVUS [Suspect]
     Active Substance: OCRELIZUMAB
     Route: 042
     Dates: start: 20200214
  10. NADOLOL. [Concomitant]
     Active Substance: NADOLOL
     Route: 048

REACTIONS (33)
  - Nerve compression [Not Recovered/Not Resolved]
  - Hyperaesthesia [Recovered/Resolved]
  - Rash [Recovered/Resolved]
  - B-lymphocyte count decreased [Recovering/Resolving]
  - Arrhythmia [Unknown]
  - Pulmonary embolism [Unknown]
  - Multiple sclerosis [Not Recovered/Not Resolved]
  - Rhinorrhoea [Not Recovered/Not Resolved]
  - Supraventricular tachycardia [Unknown]
  - Renal cell carcinoma [Recovered/Resolved]
  - Nasal congestion [Recovered/Resolved]
  - Neuralgia [Recovered/Resolved]
  - Syncope [Unknown]
  - Lacrimation increased [Not Recovered/Not Resolved]
  - Intervertebral disc protrusion [Not Recovered/Not Resolved]
  - Long QT syndrome [Recovered/Resolved]
  - Infusion related reaction [Recovered/Resolved]
  - Streptococcal infection [Not Recovered/Not Resolved]
  - Pruritus [Recovered/Resolved]
  - Migraine [Unknown]
  - Bradycardia [Unknown]
  - Ventricular tachycardia [Unknown]
  - Hernia [Not Recovered/Not Resolved]
  - Thrombosis [Recovered/Resolved]
  - Cataract [Not Recovered/Not Resolved]
  - Rash macular [Recovered/Resolved]
  - Hypertension [Not Recovered/Not Resolved]
  - Fatigue [Recovered/Resolved]
  - Back pain [Unknown]
  - Pain [Recovered/Resolved]
  - Nasopharyngitis [Recovered/Resolved]
  - Renal cancer [Recovered/Resolved]
  - Snoring [Recovered/Resolved]

NARRATIVE: CASE EVENT DATE: 20170816
